FAERS Safety Report 7386159-5 (Version None)
Quarter: 2011Q1

REPORT INFORMATION
  Report Type: 
  Country: None (occurrence: None)
  Receive Date: 20110331
  Receipt Date: 20110225
  Transmission Date: 20110831
  Serious: Yes (Hospitalization)
  Sender: FDA-Public Use
  Company Number: FR-PFIZER INC-2010028384

PATIENT
  Sex: Female

DRUGS (4)
  1. EFFEXOR [Suspect]
     Dosage: UNK
     Dates: start: 20100101, end: 20100101
  2. XANAX [Suspect]
     Dosage: UNK
     Route: 048
     Dates: start: 20100101, end: 20100101
  3. LEXOMIL [Suspect]
     Dosage: UNK
     Route: 048
     Dates: start: 20100101, end: 20100101
  4. ZOLPIDEM [Suspect]
     Dosage: UNK
     Route: 048
     Dates: start: 20100101, end: 20100101

REACTIONS (8)
  - SOMNOLENCE [None]
  - OXYGEN SATURATION DECREASED [None]
  - HYPERCAPNIA [None]
  - ELECTROCARDIOGRAM QT PROLONGED [None]
  - INCORRECT DOSE ADMINISTERED [None]
  - BLOOD PH DECREASED [None]
  - HYPOVENTILATION [None]
  - PO2 INCREASED [None]
